FAERS Safety Report 6304931-7 (Version None)
Quarter: 2009Q3

REPORT INFORMATION
  Report Type: 
  Country: None (occurrence: None)
  Receive Date: 20090811
  Receipt Date: 20090806
  Transmission Date: 20100115
  Serious: Yes (Other)
  Sender: FDA-Public Use
  Company Number: DE-AVENTIS-200911678DE

PATIENT
  Age: 68 Year
  Sex: Male
  Weight: 85 kg

DRUGS (10)
  1. LANTUS [Suspect]
     Dosage: DOSE: 26 - 28
     Route: 058
     Dates: start: 20000701
  2. BETA BLOCKING AGENTS [Concomitant]
     Indication: CORONARY ARTERY DISEASE
     Dosage: DOSE: NOT REPORTED
  3. CHOLESTEROL- AND TRIGLYCERIDE REDUCERS [Concomitant]
     Indication: CORONARY ARTERY DISEASE
     Dosage: DOSE: NOT REPORTED
  4. CLOPIDOGREL [Concomitant]
     Indication: CORONARY ARTERY DISEASE
     Dosage: DOSE: NOT REPORTED
  5. ASPIRIN [Concomitant]
     Indication: CORONARY ARTERY DISEASE
     Dosage: DOSE: NOT REPORTED
  6. MOLSIDOMIN [Concomitant]
     Indication: CORONARY ARTERY DISEASE
     Dosage: DOSE: MOLSIDOMINE
  7. METFORMIN [Concomitant]
     Indication: CORONARY ARTERY DISEASE
     Dosage: DOSE: MOLSIDOMINE
  8. TAMSULOSIN HCL [Concomitant]
     Indication: CORONARY ARTERY DISEASE
     Dosage: DOSE: NOT REPORTED
  9. AMLODIPINE [Concomitant]
     Indication: CORONARY ARTERY DISEASE
     Dosage: DOSE: NOT REPORTED
  10. ANGIOTENSIN II ANTAGONISTS [Concomitant]
     Indication: CORONARY ARTERY DISEASE
     Dosage: DOSE: NOT REPORTED

REACTIONS (1)
  - PROSTATE CANCER [None]
